FAERS Safety Report 10494266 (Version 2)
Quarter: 2015Q1

REPORT INFORMATION
  Report Type: Spontaneous
  Country: US (occurrence: US)
  Receive Date: 20141003
  Receipt Date: 20150213
  Transmission Date: 20150720
  Serious: Yes (Death, Hospitalization, Other)
  Sender: FDA-Public Use
  Company Number: US-GLAXOSMITHKLINE-A1090755A

PATIENT
  Age: 49 Year
  Sex: Male
  Weight: 61 kg

DRUGS (28)
  1. TYKERB [Suspect]
     Active Substance: LAPATINIB DITOSYLATE
     Indication: METASTASES TO MENINGES
  2. BACTRIM DS [Concomitant]
     Active Substance: SULFAMETHOXAZOLE\TRIMETHOPRIM
  3. ASPIRIN. [Concomitant]
     Active Substance: ASPIRIN
  4. HALOPERIDOL. [Concomitant]
     Active Substance: HALOPERIDOL
  5. LOPERAMIDE [Concomitant]
     Active Substance: LOPERAMIDE
  6. OMEPRAZOLE. [Concomitant]
     Active Substance: OMEPRAZOLE
  7. PROCHLORPERAZINE. [Concomitant]
     Active Substance: PROCHLORPERAZINE
  8. VITAMIN D3 [Concomitant]
     Active Substance: CHOLECALCIFEROL
  9. PHENYTOIN. [Concomitant]
     Active Substance: PHENYTOIN
  10. CAPECITABINE. [Concomitant]
     Active Substance: CAPECITABINE
  11. TYKERB [Suspect]
     Active Substance: LAPATINIB DITOSYLATE
     Indication: METASTATIC GASTRIC CANCER
     Dosage: 1250 MG, QD
     Route: 048
     Dates: start: 201408
  12. ATORVASTATIN [Concomitant]
     Active Substance: ATORVASTATIN
  13. QUETIAPINE [Concomitant]
     Active Substance: QUETIAPINE
  14. ZOFRAN [Concomitant]
     Active Substance: ONDANSETRON HYDROCHLORIDE
  15. CALCIUM CARBONATE. [Concomitant]
     Active Substance: CALCIUM CARBONATE
  16. DIAZEPAM. [Concomitant]
     Active Substance: DIAZEPAM
  17. KEPPRA [Concomitant]
     Active Substance: LEVETIRACETAM
  18. LOVENOX [Concomitant]
     Active Substance: ENOXAPARIN SODIUM
  19. MIRALAX [Concomitant]
     Active Substance: POLYETHYLENE GLYCOL 3350
  20. OXYCODONE [Concomitant]
     Active Substance: OXYCODONE
  21. VICODIN [Concomitant]
     Active Substance: ACETAMINOPHEN\HYDROCODONE BITARTRATE
  22. BISACODYL. [Concomitant]
     Active Substance: BISACODYL
  23. BISOPROLOL [Concomitant]
     Active Substance: BISOPROLOL
  24. DILAUDID [Suspect]
     Active Substance: HYDROMORPHONE HYDROCHLORIDE
  25. FEXOFENADINE [Concomitant]
     Active Substance: FEXOFENADINE\FEXOFENADINE HYDROCHLORIDE
  26. TYLENOL [Concomitant]
     Active Substance: ACETAMINOPHEN
  27. LIDODERM [Concomitant]
     Active Substance: LIDOCAINE
  28. RANITIDINE [Concomitant]
     Active Substance: RANITIDINE\RANITIDINE HYDROCHLORIDE

REACTIONS (22)
  - Apnoea [Unknown]
  - Ileus paralytic [Unknown]
  - Ear, nose and throat examination abnormal [Unknown]
  - Mitral valve incompetence [Unknown]
  - Visual acuity reduced [Unknown]
  - Nuchal rigidity [Unknown]
  - Loss of consciousness [Recovered/Resolved]
  - Unresponsive to stimuli [Unknown]
  - Opisthotonus [Unknown]
  - Diplegia [Unknown]
  - Cardio-respiratory arrest [Recovered/Resolved]
  - Nervous system disorder [Unknown]
  - Endotracheal intubation [Recovered/Resolved]
  - Cerebellar infarction [Unknown]
  - Intensive care [Recovered/Resolved]
  - Dysphagia [Unknown]
  - Metastatic gastric cancer [Fatal]
  - Metastases to meninges [Fatal]
  - Ventricular hypokinesia [Unknown]
  - Encephalopathy [Unknown]
  - Urinary tract infection [Unknown]
  - Constipation [Unknown]

NARRATIVE: CASE EVENT DATE: 2014
